FAERS Safety Report 8947313 (Version 1)
Quarter: 2012Q4

REPORT INFORMATION
  Report Type: 
  Country: DE (occurrence: DE)
  Receive Date: 20121205
  Receipt Date: 20121205
  Transmission Date: 20130627
  Serious: Yes (Death, Other)
  Sender: FDA-Public Use
  Company Number: DE-UCBSA-072191

PATIENT
  Age: 36 Year
  Sex: Female

DRUGS (16)
  1. KEPPRA [Suspect]
     Route: 048
     Dates: end: 201207
  2. KEPPRA [Suspect]
     Route: 048
  3. SEROQUEL XR [Suspect]
     Route: 048
     Dates: start: 2008, end: 201207
  4. SEROQUEL XR [Suspect]
     Route: 048
     Dates: start: 2012, end: 20121012
  5. AMISULPRIDE [Suspect]
     Route: 048
     Dates: end: 201207
  6. AMISULPRIDE [Suspect]
     Route: 048
  7. DIPIPERON [Suspect]
     Dosage: 40mg as required, maximum 4 times per day.
     Route: 048
     Dates: end: 201207
  8. DIPIPERON [Suspect]
     Dosage: 40 MG AS REQUIRED, MAX 4 TIMES A DAY
     Route: 048
  9. TAVOR [Suspect]
     Dosage: 1 MG AS REQUIRED, MAX. 3X/24H
     Route: 048
     Dates: end: 201207
  10. TAVOR [Suspect]
     Route: 048
  11. ZOPICLODURA [Suspect]
     Dosage: 7.5 MG AS REQUIRED, MAX. 1 / DAY
     Route: 048
     Dates: end: 201207
  12. ZOPICLODURA [Suspect]
     Route: 048
  13. METFORMIN [Concomitant]
     Dates: end: 201207
  14. METFORMIN [Concomitant]
  15. AKINETON [Concomitant]
     Dosage: 2 MG AS REQUIRED , MAX 4 MG/DAY
     Route: 048
     Dates: end: 201207
  16. AKINETON [Concomitant]
     Route: 048

REACTIONS (3)
  - Death [Fatal]
  - Electrocardiogram QT prolonged [Unknown]
  - Treatment noncompliance [Unknown]
